FAERS Safety Report 14522680 (Version 3)
Quarter: 2022Q2

REPORT INFORMATION
  Report Type: Report from Study
  Country: CO (occurrence: CO)
  Receive Date: 20180212
  Receipt Date: 20220603
  Transmission Date: 20220720
  Serious: Yes (Hospitalization)
  Sender: FDA-Public Use
  Company Number: PHHY2018CO020193

PATIENT
  Sex: Female
  Weight: 58 kg

DRUGS (2)
  1. TASIGNA [Suspect]
     Active Substance: NILOTINIB
     Indication: Chronic myeloid leukaemia
     Dosage: 150 MG, QID
     Route: 048
     Dates: start: 20110117
  2. ACETAMINOPHEN [Concomitant]
     Active Substance: ACETAMINOPHEN
     Indication: Product used for unknown indication
     Dosage: UNK
     Route: 065

REACTIONS (13)
  - Splenomegaly [Unknown]
  - Mass [Unknown]
  - Depressed mood [Unknown]
  - White blood cell count increased [Unknown]
  - Haematoma [Unknown]
  - Hepatomegaly [Unknown]
  - Pyrexia [Unknown]
  - Feeling abnormal [Unknown]
  - Discouragement [Unknown]
  - Illness [Unknown]
  - Pain [Unknown]
  - Pain in extremity [Unknown]
  - Inappropriate schedule of product administration [Unknown]
